FAERS Safety Report 6986061-4 (Version None)
Quarter: 2010Q3

REPORT INFORMATION
  Report Type: 
  Country: None (occurrence: None)
  Receive Date: 20100910
  Receipt Date: 20100827
  Transmission Date: 20110219
  Serious: Yes (Other)
  Sender: FDA-Public Use
  Company Number: JPI-P-012015

PATIENT
  Age: 59 Year
  Sex: Male
  Weight: 122.4712 kg

DRUGS (1)
  1. XYREM [Suspect]
     Indication: NARCOLEPSY
     Dosage: UNKNOWN, ORAL; 9 GM (4.5 GM, 2 IN 1 D) ORAL
     Route: 048
     Dates: start: 20060101

REACTIONS (1)
  - PANCREATIC CARCINOMA [None]
